FAERS Safety Report 17364906 (Version 1)
Quarter: 2020Q1

REPORT INFORMATION
  Report Type: Spontaneous
  Country: CN (occurrence: CN)
  Receive Date: 20200204
  Receipt Date: 20200204
  Transmission Date: 20200409
  Serious: Yes (Other)
  Sender: FDA-Public Use
  Company Number: CN-UCBSA-2020003806

PATIENT
  Age: 0 Day
  Sex: Male
  Weight: 3.8 kg

DRUGS (1)
  1. CIMZIA [Suspect]
     Active Substance: CERTOLIZUMAB PEGOL
     Indication: RHEUMATOID ARTHRITIS
     Route: 064

REACTIONS (3)
  - Maternal exposure during pregnancy [Unknown]
  - Foetal distress syndrome [Unknown]
  - Premature baby [Unknown]

NARRATIVE: CASE EVENT DATE: 20191128
